FAERS Safety Report 4488191-8 (Version None)
Quarter: 2004Q4

REPORT INFORMATION
  Report Type: 
  Country: None (occurrence: None)
  Receive Date: 20041028
  Receipt Date: 20041021
  Transmission Date: 20050328
  Serious: Yes (Hospitalization)
  Sender: FDA-Public Use
  Company Number: PHRM2004FR03183

PATIENT
  Age: 40 None
  Sex: Male
  Weight: 100 kg

DRUGS (2)
  1. VOLTAREN [Suspect]
     Dosage: 1 DF, ONCE/SINGLE
     Route: 048
     Dates: start: 20040501
  2. RIFAMPIN AND ISONIAZID [Suspect]
     Indication: PROPHYLAXIS
     Dosage: 1 DF, BID
     Route: 048
     Dates: start: 20031213, end: 20040327

REACTIONS (19)
  - ALANINE AMINOTRANSFERASE INCREASED [None]
  - ANAEMIA [None]
  - ANTINUCLEAR ANTIBODY POSITIVE [None]
  - ASPARTATE AMINOTRANSFERASE INCREASED [None]
  - AUTOIMMUNE HEPATITIS [None]
  - BIOPSY LIVER ABNORMAL [None]
  - BLOOD BILIRUBIN INCREASED [None]
  - CATHETER PLACEMENT [None]
  - CHOLANGITIS [None]
  - CHOLESTASIS [None]
  - DUODENAL ULCER HAEMORRHAGE [None]
  - ENCEPHALOPATHY [None]
  - EPSTEIN-BARR VIRUS INFECTION [None]
  - GAMMA-GLUTAMYLTRANSFERASE INCREASED [None]
  - HEPATIC NECROSIS [None]
  - JAUNDICE [None]
  - PNEUMOTHORAX [None]
  - THROMBOCYTOPENIA [None]
  - WHITE BLOOD CELL COUNT DECREASED [None]
